FAERS Safety Report 8548505-6 (Version None)
Quarter: 2012Q3

REPORT INFORMATION
  Report Type: 
  Country: None (occurrence: None)
  Receive Date: 20120730
  Receipt Date: 20120719
  Transmission Date: 20120928
  Serious: Yes (Other)
  Sender: FDA-Public Use
  Company Number: US-JNJFOC-20120712629

PATIENT
  Age: 81 Year
  Sex: Female

DRUGS (9)
  1. METOPROLOL SUCCINATE [Concomitant]
     Indication: CARDIAC DISORDER
     Route: 065
  2. EXTRA STRENGTH TYLENOL PM [Suspect]
     Indication: SLEEP DISORDER THERAPY
     Dosage: 1 CAPLET, EVERY NIGHT
     Route: 048
  3. VESICARE [Concomitant]
     Indication: URINARY INCONTINENCE
     Route: 065
  4. NEXIUM [Concomitant]
     Indication: GASTROOESOPHAGEAL REFLUX DISEASE
     Route: 065
  5. PLAVIX [Concomitant]
     Indication: ANTICOAGULANT THERAPY
     Route: 065
  6. SIMVASTATIN [Concomitant]
     Indication: BLOOD CHOLESTEROL INCREASED
     Route: 065
  7. TRADJENTA [Concomitant]
     Indication: DIABETES MELLITUS
     Route: 065
  8. ISOSORBIDE DINITRATE [Concomitant]
     Indication: CARDIAC DISORDER
     Route: 065
  9. LISINOPRIL [Concomitant]
     Indication: BLOOD PRESSURE
     Route: 065

REACTIONS (2)
  - INTENTIONAL DRUG MISUSE [None]
  - DRUG DEPENDENCE [None]
